FAERS Safety Report 5769946-6 (Version None)
Quarter: 2008Q2

REPORT INFORMATION
  Report Type: 
  Country: None (occurrence: None)
  Receive Date: 20080613
  Receipt Date: 20080416
  Transmission Date: 20081010
  Serious: No
  Sender: FDA-Public Use
  Company Number: US-ABBOTT-08P-163-0447663-00

PATIENT
  Sex: Female
  Weight: 108.96 kg

DRUGS (2)
  1. HUMIRA [Suspect]
     Indication: PSORIASIS
     Route: 058
     Dates: start: 20080413, end: 20080413
  2. HUMIRA [Suspect]
     Dates: start: 20080401

REACTIONS (3)
  - FATIGUE [None]
  - NASOPHARYNGITIS [None]
  - NAUSEA [None]
